FAERS Safety Report 5224436-4 (Version None)
Quarter: 2007Q1

REPORT INFORMATION
  Report Type: 
  Country: None (occurrence: None)
  Receive Date: 20070126
  Receipt Date: 20070117
  Transmission Date: 20070707
  Serious: Yes (Death)
  Sender: FDA-Public Use
  Company Number: 2006US002839

PATIENT
  Age: 41 Year
  Sex: Female

DRUGS (2)
  1. AMBISOME [Suspect]
     Indication: MENINGITIS CRYPTOCOCCAL
     Dosage: 5 MG/KG, UID/QD, IV NOS
     Route: 042
  2. AMPHOTERICIN B [Suspect]
     Dosage: 5 MG/KG, UID/QD, IV NOS
     Route: 042

REACTIONS (31)
  - ADRENAL CORTEX NECROSIS [None]
  - ANAEMIA [None]
  - ARRHYTHMIA [None]
  - CARDIAC ARREST [None]
  - CARDIOTOXICITY [None]
  - CEREBRAL INFARCTION [None]
  - CHEST PAIN [None]
  - CORONARY ARTERY ANEURYSM [None]
  - DRUG ADMINISTRATION ERROR [None]
  - HAEMATOTOXICITY [None]
  - HAEMODIALYSIS [None]
  - HEPATIC NECROSIS [None]
  - HYPERKALAEMIA [None]
  - HYPOAESTHESIA ORAL [None]
  - HYPOTENSION [None]
  - INTRAVASCULAR HAEMOLYSIS [None]
  - METABOLIC ACIDOSIS [None]
  - MULTI-ORGAN DISORDER [None]
  - MULTI-ORGAN FAILURE [None]
  - MYALGIA [None]
  - MYOCARDIAL INFARCTION [None]
  - MYOCARDIAL ISCHAEMIA [None]
  - NEPHROPATHY TOXIC [None]
  - OVERDOSE [None]
  - PANCREATIC NECROSIS [None]
  - PARAESTHESIA [None]
  - RENAL FAILURE ACUTE [None]
  - RENAL NECROSIS [None]
  - TACHYCARDIA [None]
  - VENTRICULAR TACHYCARDIA [None]
  - WRONG DRUG ADMINISTERED [None]
